FAERS Safety Report 19048287 (Version 1)
Quarter: 2021Q1

REPORT INFORMATION
  Report Type: Spontaneous
  Country: GB (occurrence: GB)
  Receive Date: 20210324
  Receipt Date: 20210324
  Transmission Date: 20210420
  Serious: No
  Sender: FDA-Public Use
  Company Number: GB-LUPIN PHARMACEUTICALS INC.-2021-03448

PATIENT
  Age: 49 Year
  Sex: Female

DRUGS (17)
  1. TESTOSTERONE GEL [Suspect]
     Active Substance: TESTOSTERONE
     Dosage: UNK, QD (1/7 OF A 5G SACHET A DAY )
     Route: 065
  2. TESTOSTERONE GEL [Suspect]
     Active Substance: TESTOSTERONE
     Dosage: UNK (5G USED OVER 14 DAYS)
     Route: 065
  3. TESTOSTERONE. [Concomitant]
     Active Substance: TESTOSTERONE
     Indication: MENOPAUSAL SYMPTOMS
     Dosage: 100 MILLIGRAM
     Route: 065
  4. AMITRIPTYLINE [Suspect]
     Active Substance: AMITRIPTYLINE
     Indication: NEURALGIA
     Dosage: UNK
     Route: 065
  5. TESTOSTERONE GEL [Suspect]
     Active Substance: TESTOSTERONE
     Indication: MENOPAUSAL SYMPTOMS
     Dosage: UNK
     Route: 065
  6. DIPIPANONE [Suspect]
     Active Substance: DIPIPANONE HYDROCHLORIDE
     Indication: NEURALGIA
     Dosage: UNK
     Route: 065
  7. LEVONORGESTREL. [Concomitant]
     Active Substance: LEVONORGESTREL
     Indication: MENOPAUSAL SYMPTOMS
     Dosage: UNK (FIRST INSERTED 10 YEARS AGO, REPLACE AFTER 5 YEARS)
     Route: 015
  8. WARFARIN [Concomitant]
     Active Substance: WARFARIN
     Indication: ANTIPHOSPHOLIPID ANTIBODIES POSITIVE
     Dosage: UNK
     Route: 065
  9. SANDRENA [Concomitant]
     Active Substance: ESTRADIOL
     Dosage: 2 DOSAGE FORM, BID (TWO SACHETS TWICE A DAY)
     Route: 065
  10. ESTRADIOL. [Concomitant]
     Active Substance: ESTRADIOL
     Indication: MENOPAUSAL SYMPTOMS
     Dosage: 50 MILLIGRAM
     Route: 065
  11. SANDRENA [Concomitant]
     Active Substance: ESTRADIOL
     Dosage: 1 GRAM, QD (THREE SANDRENA 1G SACHETS DAILY)
     Route: 065
  12. CITANEST [PRILOCAINE HYDROCHLORIDE] [Concomitant]
     Active Substance: PRILOCAINE HYDROCHLORIDE
     Indication: ANAESTHESIA
     Dosage: UNK
     Route: 065
  13. SANDRENA [Concomitant]
     Active Substance: ESTRADIOL
     Indication: MENOPAUSAL SYMPTOMS
     Dosage: 1 GRAM, QD (1G SACHETS AT ONE A DAY)
     Route: 065
  14. DULOXETINE. [Suspect]
     Active Substance: DULOXETINE
     Indication: NEURALGIA
     Dosage: UNK
     Route: 065
  15. OCTAPRESSIN [Concomitant]
     Indication: HORMONE THERAPY
     Dosage: UNK
     Route: 065
  16. HYDROXYCHLOROQUINE [Concomitant]
     Active Substance: HYDROXYCHLOROQUINE
     Indication: SYSTEMIC LUPUS ERYTHEMATOSUS
     Dosage: UNK
     Route: 065
  17. ESTROGEN [Concomitant]
     Active Substance: ESTROGENS
     Indication: MENOPAUSAL SYMPTOMS
     Dosage: 25 MICROGRAM
     Route: 067

REACTIONS (4)
  - Constipation [Unknown]
  - Depressed mood [Recovered/Resolved]
  - Off label use [Unknown]
  - Symptom recurrence [Recovered/Resolved]
